FAERS Safety Report 12357992 (Version 1)
Quarter: 2016Q2

REPORT INFORMATION
  Report Type: Spontaneous
  Country: US (occurrence: None)
  Receive Date: 20160511
  Receipt Date: 20160511
  Transmission Date: 20160815
  Serious: No
  Sender: FDA-Public Use
  Company Number: None

PATIENT
  Age: 50 Year
  Sex: Female

DRUGS (1)
  1. REMICADE [Suspect]
     Active Substance: INFLIXIMAB
     Indication: COLITIS ULCERATIVE
     Dosage: EVERY 8 WEEKS
     Route: 042
     Dates: start: 20150306

REACTIONS (6)
  - Chest discomfort [None]
  - Hypertension [None]
  - Flushing [None]
  - Dyspnoea [None]
  - Infusion related reaction [None]
  - Tic [None]

NARRATIVE: CASE EVENT DATE: 20160418
